FAERS Safety Report 18134754 (Version 2)
Quarter: 2020Q3

REPORT INFORMATION
  Report Type: Spontaneous
  Country: DE (occurrence: DE)
  Receive Date: 20200811
  Receipt Date: 20200922
  Transmission Date: 20201103
  Serious: Yes (Hospitalization)
  Sender: FDA-Public Use
  Company Number: NVSC2020DE219682

PATIENT
  Sex: Male
  Weight: 11.6 kg

DRUGS (1)
  1. ZOLGENSMA [Suspect]
     Active Substance: ONASEMNOGENE ABEPARVOVEC-XIOI
     Indication: SPINAL MUSCULAR ATROPHY
     Dosage: UNK, ONCE/SINGLE
     Route: 042
     Dates: start: 20200728, end: 20200728

REACTIONS (8)
  - Fatigue [Recovering/Resolving]
  - Crying [Unknown]
  - Acute hepatic failure [Recovering/Resolving]
  - Pyrexia [Recovering/Resolving]
  - Oedema peripheral [Unknown]
  - Alanine aminotransferase increased [Unknown]
  - Aspartate aminotransferase increased [Unknown]
  - Food refusal [Unknown]

NARRATIVE: CASE EVENT DATE: 20200801
